FAERS Safety Report 6745772-6 (Version None)
Quarter: 2010Q2

REPORT INFORMATION
  Report Type: 
  Country: None (occurrence: None)
  Receive Date: 20100528
  Receipt Date: 20100524
  Transmission Date: 20101027
  Serious: Yes (Death, Hospitalization, Other)
  Sender: FDA-Public Use
  Company Number: PHHY2009AU39776

PATIENT
  Sex: Male

DRUGS (5)
  1. CLOZARIL [Suspect]
     Dosage: 300 MG
     Dates: start: 20050119, end: 20090914
  2. CLOZARIL [Suspect]
     Dosage: UNK
     Dates: start: 20090916
  3. CLOZARIL [Suspect]
     Dosage: 500 MG
     Dates: end: 20091130
  4. CLOZARIL [Suspect]
     Dosage: 300 MG
     Dates: start: 20091207
  5. LITHIUM [Concomitant]
     Dosage: 450-500 MG

REACTIONS (7)
  - DEATH [None]
  - DELIRIUM [None]
  - HEPATITIS C [None]
  - INCONTINENCE [None]
  - NEUTROPHIL COUNT DECREASED [None]
  - PSYCHOTIC DISORDER [None]
  - WHITE BLOOD CELL COUNT DECREASED [None]
